FAERS Safety Report 9580175 (Version 3)
Quarter: 2013Q4

REPORT INFORMATION
  Report Type: Report from Study
  Country: US (occurrence: US)
  Receive Date: 20131002
  Receipt Date: 20131007
  Transmission Date: 20140711
  Serious: Yes (Hospitalization)
  Sender: FDA-Public Use
  Company Number: US-ABBVIE-13P-163-1150798-00

PATIENT
  Age: 46 Year
  Sex: Female
  Weight: 72.64 kg

DRUGS (13)
  1. HUMIRA [Suspect]
     Indication: CROHN^S DISEASE
     Dates: start: 200804
  2. FOSAMAX [Concomitant]
     Indication: OSTEOPOROSIS
  3. AMITIZA [Concomitant]
     Indication: CONSTIPATION
  4. MULTIVITAMIN [Concomitant]
     Indication: PRODUCT USED FOR UNKNOWN INDICATION
  5. OMEPRAZOLE [Concomitant]
     Indication: GASTROOESOPHAGEAL REFLUX DISEASE
  6. OMEPRAZOLE [Concomitant]
     Indication: OESOPHAGEAL SPASM
  7. CALCIUM WITH VITAMIN D [Concomitant]
     Indication: PRODUCT USED FOR UNKNOWN INDICATION
  8. ULTRAM ER [Concomitant]
     Indication: PAIN
  9. ULTRAM [Concomitant]
     Indication: BREAKTHROUGH PAIN
     Dosage: 1-3 TABS AS NEEDED
  10. PROBIOTIC ADVANTAGE [Concomitant]
     Indication: PRODUCT USED FOR UNKNOWN INDICATION
  11. HYOSCYAMINE [Concomitant]
     Indication: IRRITABLE BOWEL SYNDROME
  12. TRAMADOL [Concomitant]
     Indication: PRODUCT USED FOR UNKNOWN INDICATION
  13. CALCIUM [Concomitant]
     Indication: PRODUCT USED FOR UNKNOWN INDICATION

REACTIONS (15)
  - Uterine leiomyoma [Not Recovered/Not Resolved]
  - Drug effect incomplete [Not Recovered/Not Resolved]
  - Abdominal pain upper [Not Recovered/Not Resolved]
  - Crohn^s disease [Not Recovered/Not Resolved]
  - Injection site haemorrhage [Recovered/Resolved]
  - Blood cholesterol increased [Recovered/Resolved]
  - Hepatic enzyme abnormal [Not Recovered/Not Resolved]
  - Wrong technique in drug usage process [Recovered/Resolved]
  - Drug dispensing error [Unknown]
  - Incorrect dose administered [Recovered/Resolved]
  - Injection site extravasation [Recovered/Resolved]
  - Injection site haemorrhage [Recovered/Resolved]
  - Low density lipoprotein increased [Not Recovered/Not Resolved]
  - Wrong technique in drug usage process [Recovered/Resolved]
  - Drug dose omission [Recovered/Resolved]
